FAERS Safety Report 8293992-4 (Version None)
Quarter: 2012Q2

REPORT INFORMATION
  Report Type: 
  Country: None (occurrence: None)
  Receive Date: 20120418
  Receipt Date: 20120405
  Transmission Date: 20120825
  Serious: Yes (Other)
  Sender: FDA-Public Use
  Company Number: ES-JNJFOC-20110201105

PATIENT

DRUGS (2)
  1. REMICADE [Suspect]
     Route: 064
  2. REMICADE [Suspect]
     Indication: FOETAL EXPOSURE DURING PREGNANCY
     Dosage: FOR 5 YEARS
     Route: 064

REACTIONS (1)
  - PREMATURE BABY [None]
